FAERS Safety Report 7511671-5 (Version None)
Quarter: 2011Q2

REPORT INFORMATION
  Report Type: 
  Country: None (occurrence: None)
  Receive Date: 20110531
  Receipt Date: 20110520
  Transmission Date: 20111010
  Serious: Yes (Hospitalization)
  Sender: FDA-Public Use
  Company Number: FR-JNJFOC-20110510232

PATIENT
  Sex: Female

DRUGS (17)
  1. MEMANTINE HYDROCHLORIDE [Suspect]
     Route: 048
     Dates: end: 20100219
  2. LEVOTHYROXINE SODIUM [Concomitant]
     Indication: HYPOTHYROIDISM
     Dosage: 1 TABLET ON MORNING
     Route: 048
  3. HALDOL [Suspect]
     Indication: PRODUCT USED FOR UNKNOWN INDICATION
     Route: 048
     Dates: end: 20100201
  4. ATARAX [Suspect]
     Route: 048
     Dates: end: 20100219
  5. LEVEMIR [Concomitant]
     Indication: TYPE 2 DIABETES MELLITUS
     Route: 058
  6. ARICEPT [Suspect]
     Route: 048
     Dates: end: 20100219
  7. MEPRONIZINE [Concomitant]
     Indication: SLEEP DISORDER
     Route: 048
  8. TRIMEPRAZINE TARTRATE [Concomitant]
     Indication: SLEEP DISORDER
     Dosage: 40 GTTES ON EVENING
     Route: 048
  9. LEVEMIR [Concomitant]
     Dosage: 20 IU ON MORNING AND 6 IU ON EVENING
     Route: 058
  10. FERROUS SULFATE TAB [Concomitant]
     Indication: ILL-DEFINED DISORDER
     Route: 048
  11. HALDOL [Suspect]
     Route: 048
     Dates: start: 20100201
  12. ATARAX [Suspect]
     Indication: DEMENTIA ALZHEIMER'S TYPE
     Route: 048
     Dates: end: 20100623
  13. HUMALOG [Concomitant]
     Dosage: 4 ON MORNING  6 AT NOON  6 ON EVENING
  14. MEMANTINE HYDROCHLORIDE [Suspect]
     Indication: DEMENTIA ALZHEIMER'S TYPE
     Route: 048
     Dates: start: 20100201, end: 20100623
  15. VALIUM [Suspect]
     Indication: PRODUCT USED FOR UNKNOWN INDICATION
     Route: 048
  16. ARICEPT [Suspect]
     Indication: DEMENTIA ALZHEIMER'S TYPE
     Route: 048
     Dates: start: 20100201, end: 20100623
  17. CITALOPRAM HYDROBROMIDE [Suspect]
     Indication: PRODUCT USED FOR UNKNOWN INDICATION
     Route: 048

REACTIONS (7)
  - DECREASED APPETITE [None]
  - DEHYDRATION [None]
  - DISTURBANCE IN ATTENTION [None]
  - AGITATION [None]
  - SOMNOLENCE [None]
  - GENERAL PHYSICAL HEALTH DETERIORATION [None]
  - ABNORMAL BEHAVIOUR [None]
